FAERS Safety Report 11318093 (Version 1)
Quarter: 2015Q3

REPORT INFORMATION
  Report Type: Other
  Country: US (occurrence: US)
  Receive Date: 20150728
  Receipt Date: 20150728
  Transmission Date: 20151125
  Serious: Yes (Hospitalization)
  Sender: FDA-Public Use
  Company Number: US-SHIRE-US201508365

PATIENT
  Age: 34 Year
  Sex: Female
  Weight: 108.39 kg

DRUGS (9)
  1. DIPHENHYDRAMINE. [Concomitant]
     Active Substance: DIPHENHYDRAMINE
     Indication: ANAPHYLACTIC REACTION
     Dosage: 25 MG, AS REQ^D
     Route: 048
     Dates: start: 20131127
  2. DAYTIME COLD RELIEF [Concomitant]
     Indication: PRODUCT USED FOR UNKNOWN INDICATION
     Dosage: (10-5-325MG) UNK, OTHER (AS DIRECTED)
     Route: 065
     Dates: start: 20110203
  3. IBUPROFEN. [Concomitant]
     Active Substance: IBUPROFEN
     Indication: PRODUCT USED FOR UNKNOWN INDICATION
     Dosage: 1 DF, OTHER (AS DIRECTED)
     Route: 065
     Dates: start: 20100804
  4. PROZAC [Concomitant]
     Active Substance: FLUOXETINE HYDROCHLORIDE
     Indication: PRODUCT USED FOR UNKNOWN INDICATION
     Dosage: 1 DF, OTHER (AS DIRECTED)
     Route: 065
     Dates: start: 20100804
  5. PRENATAL VITAMINS                  /07499601/ [Concomitant]
     Active Substance: VITAMINS
     Indication: PRODUCT USED FOR UNKNOWN INDICATION
     Dosage: 1 DF, OTHER (AS DIRECTED)
     Dates: start: 20100804
  6. SODIUM CHLORIDE. [Concomitant]
     Active Substance: SODIUM CHLORIDE
     Indication: CATHETER MANAGEMENT
     Dosage: (0.9%) UNK, OTHER (AS DIRECTED)
     Route: 042
     Dates: start: 20131127
  7. STERILE WATER [Concomitant]
     Active Substance: WATER
     Indication: MEDICATION DILUTION
     Dosage: 5 ML, OTHER (AS DIRECTED)
     Route: 042
     Dates: start: 20131127
  8. CINRYZE [Suspect]
     Active Substance: HUMAN C1-ESTERASE INHIBITOR
     Indication: HEREDITARY ANGIOEDEMA
     Dosage: 1000 UNITS UNK, OTHER (EVERY 2 DAYS)
     Route: 042
  9. EPIPEN [Concomitant]
     Active Substance: EPINEPHRINE
     Indication: ANAPHYLACTIC REACTION
     Dosage: 0.3 MG, AS REQ^D
     Route: 030
     Dates: start: 20131127

REACTIONS (2)
  - Inappropriate schedule of drug administration [Unknown]
  - Female sterilisation [Unknown]

NARRATIVE: CASE EVENT DATE: 20150710
